FAERS Safety Report 6179906-1 (Version None)
Quarter: 2009Q2

REPORT INFORMATION
  Report Type: 
  Country: None (occurrence: None)
  Receive Date: 20090505
  Receipt Date: 20090504
  Transmission Date: 20091009
  Serious: Yes (Death, Other)
  Sender: FDA-Public Use
  Company Number: US-ROXANE LABORATORIES, INC.-2009-RO-00457RO

PATIENT
  Sex: Male
  Weight: 92 kg

DRUGS (11)
  1. METHADONE [Suspect]
     Route: 065
     Dates: end: 20081001
  2. OPANA ER [Suspect]
     Indication: BACK PAIN
     Dosage: 120MG
     Route: 048
     Dates: start: 20071201, end: 20081001
  3. FENTANYL [Suspect]
     Route: 065
     Dates: end: 20081001
  4. ATROPINE [Concomitant]
     Route: 065
  5. VICODIN [Concomitant]
     Indication: BREAKTHROUGH PAIN
     Route: 048
  6. NEURONTIN [Concomitant]
     Dosage: 600MG
     Route: 048
  7. BUPROPION HCL [Concomitant]
     Dosage: 150MG
     Route: 048
  8. CITALOPRAM HYDROBROMIDE [Concomitant]
     Dosage: 40MG
     Route: 048
  9. TRAZODONE HCL [Concomitant]
     Route: 065
  10. MEPROBAMATE [Concomitant]
     Route: 065
     Dates: end: 20081001
  11. CARISOPRODOL [Concomitant]
     Route: 065
     Dates: end: 20081001

REACTIONS (5)
  - ACCIDENTAL OVERDOSE [None]
  - CARDIOMEGALY [None]
  - DRUG TOXICITY [None]
  - HEPATOSPLENOMEGALY [None]
  - HYPERTENSION [None]
